FAERS Safety Report 20947032 (Version 1)
Quarter: 2022Q2

REPORT INFORMATION
  Report Type: Spontaneous
  Country: US (occurrence: US)
  Receive Date: 20220610
  Receipt Date: 20220610
  Transmission Date: 20220721
  Serious: No
  Sender: FDA-Public Use
  Company Number: US-RIGEL PHARMACEUTICALS, INC.-2022FOS000058

PATIENT
  Sex: Male
  Weight: 116.55 kg

DRUGS (1)
  1. TAVALISSE [Suspect]
     Active Substance: FOSTAMATINIB
     Indication: Product used for unknown indication
     Dosage: 100 MG, BID
     Route: 048
     Dates: start: 20211231

REACTIONS (6)
  - Chronic kidney disease [Unknown]
  - Anaemia [Unknown]
  - Weight increased [Unknown]
  - Fluid retention [Unknown]
  - Product dose omission issue [Unknown]
  - Blood pressure increased [Unknown]
